FAERS Safety Report 13816032 (Version 2)
Quarter: 2017Q3

REPORT INFORMATION
  Report Type: Spontaneous
  Country: IT (occurrence: IT)
  Receive Date: 20170731
  Receipt Date: 20170802
  Transmission Date: 20171127
  Serious: Yes (Other)
  Sender: FDA-Public Use
  Company Number: IT-TEVA-791000ACC

PATIENT
  Age: 56 Year
  Sex: Male

DRUGS (1)
  1. OLANZAPINA TEVA - 20 MG COMPRESSE RIVESTITE CON FILM - TEVA B.V. [Suspect]
     Active Substance: OLANZAPINE
     Indication: SCHIZOPHRENIA
     Dosage: 20 MILLIGRAM DAILY;

REACTIONS (4)
  - Agitation [Unknown]
  - Insomnia [Unknown]
  - Dysphoria [Unknown]
  - Time perception altered [Unknown]

NARRATIVE: CASE EVENT DATE: 20170601
